FAERS Safety Report 23495577 (Version 1)
Quarter: 2024Q1

REPORT INFORMATION
  Report Type: Spontaneous
  Country: IN (occurrence: IN)
  Receive Date: 20240207
  Receipt Date: 20240207
  Transmission Date: 20240409
  Serious: Yes (Other)
  Sender: FDA-Public Use
  Company Number: IN-JNJFOC-20240213107

PATIENT
  Age: 4 Decade
  Sex: Female

DRUGS (16)
  1. FLUNARIZINE [Suspect]
     Active Substance: FLUNARIZINE
     Indication: Migraine
     Route: 065
     Dates: start: 202101
  2. TOPIRAMATE [Suspect]
     Active Substance: TOPIRAMATE
     Indication: Migraine
     Dosage: 12 WEEKS
     Route: 065
     Dates: start: 202206
  3. ULTRACET [Suspect]
     Active Substance: ACETAMINOPHEN\TRAMADOL HYDROCHLORIDE
     Indication: Migraine
     Route: 065
  4. PROPRANOLOL [Suspect]
     Active Substance: PROPRANOLOL HYDROCHLORIDE
     Indication: Migraine
     Route: 065
     Dates: start: 202101
  5. IBUPROFEN [Suspect]
     Active Substance: IBUPROFEN
     Indication: Migraine
     Dosage: 3-5 DAYS PER MONTH
     Route: 065
     Dates: start: 202101
  6. DICLOFENAC [Suspect]
     Active Substance: DICLOFENAC
     Indication: Migraine
     Dosage: 3-5 DAYS PER MONTH
     Route: 065
     Dates: start: 202101
  7. AMITRIPTYLINE [Suspect]
     Active Substance: AMITRIPTYLINE
     Indication: Migraine
     Dosage: AS PREVENTIVE THERAPY FOR 6WEEKS
     Route: 065
     Dates: start: 202201
  8. VALPROIC ACID [Suspect]
     Active Substance: VALPROIC ACID
     Indication: Migraine
     Dosage: AS PREVENTIVE THERAPY FOR 6WEEKS
     Route: 065
  9. NAPROXEN [Suspect]
     Active Substance: NAPROXEN
     Indication: Migraine
     Route: 065
     Dates: start: 202201
  10. SUMATRIPTAN [Suspect]
     Active Substance: SUMATRIPTAN
     Indication: Migraine
     Dosage: (5-6 DAYS/MONTH
     Route: 065
     Dates: start: 202201
  11. RIZATRIPTAN [Suspect]
     Active Substance: RIZATRIPTAN
     Indication: Migraine
     Route: 065
     Dates: start: 2022
  12. ERGOTAMINE [Suspect]
     Active Substance: CAFFEINE\ERGOTAMINE\ERGOTAMINE TARTRATE
     Indication: Migraine
     Route: 065
     Dates: start: 2022
  13. TRAMADOL [Suspect]
     Active Substance: TRAMADOL\TRAMADOL HYDROCHLORIDE
     Indication: Migraine
     Route: 065
     Dates: start: 2022
  14. SUMATRIPTAN AND NAPROXEN SODIUM [Suspect]
     Active Substance: NAPROXEN SODIUM\SUMATRIPTAN SUCCINATE
     Indication: Migraine
     Dosage: 85/500MG
     Route: 065
  15. ACETAMINOPHEN\CAFFEINE\ERGOTAMINE\PROCHLORPERAZINE [Suspect]
     Active Substance: ACETAMINOPHEN\CAFFEINE\ERGOTAMINE\PROCHLORPERAZINE
     Indication: Migraine
     Route: 065
  16. PREDNISOLONE [Suspect]
     Active Substance: PREDNISOLONE
     Indication: Migraine
     Route: 065

REACTIONS (4)
  - Serotonin syndrome [Recovered/Resolved]
  - Medication overuse headache [Recovered/Resolved]
  - Drug ineffective [Unknown]
  - Off label use [Unknown]
